FAERS Safety Report 6640846-2 (Version None)
Quarter: 2010Q1

REPORT INFORMATION
  Report Type: 
  Country: None (occurrence: None)
  Receive Date: 20100318
  Receipt Date: 20100309
  Transmission Date: 20100710
  Serious: Yes (Other)
  Sender: FDA-Public Use
  Company Number: US-PFIZER INC-2010031107

PATIENT
  Sex: Female

DRUGS (6)
  1. LYRICA [Suspect]
     Indication: FIBROMYALGIA
     Dosage: 200 MG, 2X/DAY
     Dates: start: 20090218
  2. LISINOPRIL [Concomitant]
     Dosage: UNK
  3. PROMETHAZINE [Concomitant]
     Dosage: UNK
  4. NORFLEX [Concomitant]
     Dosage: UNK
  5. ALPRAZOLAM [Concomitant]
     Dosage: UNK
  6. CELEXA [Concomitant]
     Dosage: UNK

REACTIONS (1)
  - WITHDRAWAL SYNDROME [None]
